FAERS Safety Report 8553285 (Version 2)
Quarter: 2014Q2

REPORT INFORMATION
  Report Type: Spontaneous
  Country: CH (occurrence: CH)
  Receive Date: 20120509
  Receipt Date: 20140409
  Transmission Date: 20141212
  Serious: Yes (Other)
  Sender: FDA-Public Use
  Company Number: CH-PFIZER INC-2012095738

PATIENT
  Age: 9 Year
  Sex: Female
  Weight: 24 kg

DRUGS (6)
  1. SUTENT [Suspect]
     Indication: THYROID CANCER METASTATIC
     Dosage: 37.5 MG, 1X/DAY
     Route: 048
     Dates: start: 20111007, end: 20111104
  2. SUTENT [Suspect]
     Dosage: 37.5 MG, 1X/DAY
     Route: 048
     Dates: start: 20111117, end: 20111215
  3. SUTENT [Suspect]
     Dosage: 37.5 MG, 1X/DAY
     Route: 048
     Dates: start: 201201, end: 2012
  4. SUTENT [Suspect]
     Dosage: 25 MG, 1X/DAY
     Route: 048
     Dates: start: 20120212, end: 20120313
  5. SUTENT [Suspect]
     Dosage: 25 MG, 1X/DAY
     Route: 048
     Dates: start: 20120326, end: 20120412
  6. EUTHYROX [Concomitant]
     Indication: HORMONE THERAPY
     Dosage: 75 UG, UNK
     Route: 048
     Dates: start: 201006

REACTIONS (15)
  - Renal failure [Recovered/Resolved]
  - Cardiomyopathy acute [Recovered/Resolved]
  - Abdominal pain [Recovered/Resolved]
  - Eyelid oedema [Recovered/Resolved]
  - Thrombocytopenia [Unknown]
  - General physical health deterioration [Recovered/Resolved]
  - Palpitations [Unknown]
  - Educational problem [Unknown]
  - Hypocalcaemia [Unknown]
  - Oedema [Unknown]
  - Dry skin [Not Recovered/Not Resolved]
  - Hair colour changes [Unknown]
  - Fatigue [Recovering/Resolving]
  - Diarrhoea [Unknown]
  - Off label use [Unknown]
